FAERS Safety Report 6892474-1 (Version None)
Quarter: 2010Q3

REPORT INFORMATION
  Report Type: 
  Country: None (occurrence: None)
  Receive Date: 20100731
  Receipt Date: 20080722
  Transmission Date: 20110219
  Serious: Yes (Other)
  Sender: FDA-Public Use
  Company Number: US-PFIZER INC-2008044658

PATIENT
  Sex: Male
  Weight: 86.2 kg

DRUGS (5)
  1. NEURONTIN [Suspect]
     Indication: NEURALGIA
     Dosage: 6X600MG QD EVERY DAY TDD:3600MG
     Route: 048
     Dates: start: 20020101
  2. NEURONTIN [Suspect]
     Indication: SURGERY
  3. LOPRESSOR [Concomitant]
     Indication: CARDIAC DISORDER
  4. LIPITOR [Concomitant]
     Indication: BLOOD CHOLESTEROL INCREASED
  5. ELAVIL [Concomitant]

REACTIONS (5)
  - CONSTIPATION [None]
  - DIABETES MELLITUS [None]
  - DIPLOPIA [None]
  - DRY MOUTH [None]
  - SWELLING [None]
